FAERS Safety Report 9350305 (Version 2)
Quarter: 2013Q3

REPORT INFORMATION
  Report Type: Report from Study
  Country: JP (occurrence: JP)
  Receive Date: 20130617
  Receipt Date: 20130724
  Transmission Date: 20140515
  Serious: Yes (Hospitalization)
  Sender: FDA-Public Use
  Company Number: JP-ROCHE-1235866

PATIENT
  Age: 70 Year
  Sex: Male

DRUGS (14)
  1. METHOXY POLYETHYLENE GLYCOL-EPOETIN BETA [Suspect]
     Indication: NEPHROGENIC ANAEMIA
     Route: 058
     Dates: start: 20121031, end: 20121031
  2. METHOXY POLYETHYLENE GLYCOL-EPOETIN BETA [Suspect]
     Indication: NEPHROGENIC ANAEMIA
     Route: 058
     Dates: start: 20121130, end: 20121130
  3. METHOXY POLYETHYLENE GLYCOL-EPOETIN BETA [Suspect]
     Indication: NEPHROGENIC ANAEMIA
     Route: 058
     Dates: start: 20121221, end: 20121221
  4. METHOXY POLYETHYLENE GLYCOL-EPOETIN BETA [Suspect]
     Indication: NEPHROGENIC ANAEMIA
     Route: 058
     Dates: start: 20130125, end: 20130125
  5. ADALAT CR [Concomitant]
     Route: 048
  6. LIPOVAS [Concomitant]
     Route: 048
  7. ALOSITOL [Concomitant]
     Route: 048
  8. BAYASPIRIN [Concomitant]
     Route: 048
  9. GASTER (JAPAN) [Concomitant]
     Route: 048
     Dates: end: 20130123
  10. LASIX [Concomitant]
     Indication: DIABETIC NEPHROPATHY
     Route: 048
  11. VILDAGLIPTIN [Concomitant]
     Indication: DIABETIC NEPHROPATHY
     Route: 048
  12. DIOVAN [Concomitant]
     Route: 048
  13. KREMEZIN [Concomitant]
     Indication: DIABETIC NEPHROPATHY
     Route: 048
     Dates: end: 20130123
  14. FERROMIA [Concomitant]
     Route: 048
     Dates: end: 20130123

REACTIONS (2)
  - Cellulitis [Recovered/Resolved]
  - Renal failure [Not Recovered/Not Resolved]
